FAERS Safety Report 25022702 (Version 2)
Quarter: 2025Q1

REPORT INFORMATION
  Report Type: Spontaneous
  Country: US (occurrence: US)
  Receive Date: 20250228
  Receipt Date: 20250305
  Transmission Date: 20250409
  Serious: Yes (Other)
  Sender: MYLAN
  Company Number: US-MYLANLABS-2025M1016810

PATIENT
  Weight: 74.84 kg

DRUGS (2)
  1. LEVOTHYROXINE SODIUM [Suspect]
     Active Substance: LEVOTHYROXINE SODIUM
     Indication: Hypothyroidism
     Dosage: 125 MICROGRAM, QD (ONCE DAILY)
     Dates: start: 20241126, end: 20250118
  2. CITRUCEL [Concomitant]
     Active Substance: METHYLCELLULOSE (4000 CPS)

REACTIONS (5)
  - Neuropathy peripheral [Recovering/Resolving]
  - Dysstasia [Recovering/Resolving]
  - Gait disturbance [Recovering/Resolving]
  - Muscular weakness [Recovering/Resolving]
  - Product substitution issue [Unknown]
